FAERS Safety Report 11787224 (Version 2)
Quarter: 2015Q4

REPORT INFORMATION
  Report Type: Spontaneous
  Country: US (occurrence: US)
  Receive Date: 20151130
  Receipt Date: 20151130
  Transmission Date: 20160305
  Serious: Yes (Other)
  Sender: FDA-Public Use
  Company Number: US-SA-2015SA192300

PATIENT
  Sex: Female

DRUGS (2)
  1. LANTUS [Suspect]
     Active Substance: INSULIN GLARGINE
     Indication: DIABETES MELLITUS
     Route: 065
  2. CERDELGA [Suspect]
     Active Substance: ELIGLUSTAT
     Dosage: THE REPORTER THOUGHT THAT THE PATIENT TOOK ELIGLUSTAT ONCE DAILY BUT WAS NOT CERTAIN
     Route: 065

REACTIONS (1)
  - Diabetes mellitus inadequate control [Unknown]
